FAERS Safety Report 11759101 (Version 1)
Quarter: 2015Q4

REPORT INFORMATION
  Report Type: Spontaneous
  Country: US (occurrence: US)
  Receive Date: 20151120
  Receipt Date: 20151120
  Transmission Date: 20160304
  Serious: No
  Sender: FDA-Public Use
  Company Number: US-JNJFOC-20151017812

PATIENT
  Age: 63 Year
  Sex: Male
  Weight: 95.26 kg

DRUGS (6)
  1. VICODIN [Concomitant]
     Active Substance: ACETAMINOPHEN\HYDROCODONE BITARTRATE
     Indication: PAIN
     Route: 065
  2. MENS ROGAINE EXTRA STRENGTH [Suspect]
     Active Substance: MINOXIDIL
     Route: 065
  3. CYMBALTA [Concomitant]
     Active Substance: DULOXETINE HYDROCHLORIDE
     Indication: PAIN
     Route: 065
  4. MULTIVITAMINS [Concomitant]
     Active Substance: VITAMINS
     Indication: ROUTINE HEALTH MAINTENANCE
     Route: 065
  5. MENS ROGAINE EXTRA STRENGTH [Suspect]
     Active Substance: MINOXIDIL
     Indication: HAIR GROWTH ABNORMAL
     Route: 065
  6. CELEBREX [Concomitant]
     Active Substance: CELECOXIB
     Indication: PAIN
     Route: 065

REACTIONS (2)
  - Drug ineffective [Unknown]
  - Drug administered at inappropriate site [Unknown]
